FAERS Safety Report 10072020 (Version 1)
Quarter: 2014Q2

REPORT INFORMATION
  Report Type: Spontaneous
  Country: CH (occurrence: None)
  Receive Date: 20140409
  Receipt Date: 20140409
  Transmission Date: 20141212
  Serious: Yes (Other)
  Sender: FDA-Public Use
  Company Number: FK201401215

PATIENT
  Age: 32 Year
  Sex: 0

DRUGS (1)
  1. PENTAMIDINE [Suspect]
     Indication: LEISHMANIASIS
     Dosage: UNKNOWN, UNKNOWN, UNKNOWN UNKNOWN - UNKNOWN THERAPY DATES

REACTIONS (2)
  - Anaphylactic shock [None]
  - Off label use [None]
